FAERS Safety Report 6945801-0 (Version None)
Quarter: 2010Q3

REPORT INFORMATION
  Report Type: 
  Country: None (occurrence: None)
  Receive Date: 20100827
  Receipt Date: 20100815
  Transmission Date: 20110219
  Serious: Yes (Other)
  Sender: FDA-Public Use
  Company Number: NZ-MYLANLABS-2009S1021220

PATIENT
  Age: 17 Year
  Sex: Female

DRUGS (2)
  1. ISOTANE [Suspect]
     Indication: ACNE
     Route: 048
     Dates: end: 20091211
  2. CONTRACEPTIVE [Concomitant]

REACTIONS (2)
  - ABORTION INDUCED [None]
  - DRUG EXPOSURE DURING PREGNANCY [None]
